FAERS Safety Report 7158709-5 (Version None)
Quarter: 2010Q4

REPORT INFORMATION
  Report Type: 
  Country: None (occurrence: None)
  Receive Date: 20101214
  Receipt Date: 20101207
  Transmission Date: 20110411
  Serious: Yes (Hospitalization, Other)
  Sender: FDA-Public Use
  Company Number: BR-ABBOTT-10P-020-0681668-00

PATIENT
  Age: 41 Year
  Sex: Female

DRUGS (3)
  1. VALPAKINE [Suspect]
     Indication: CONVULSION
     Dosage: TWICE A DAY
     Route: 048
     Dates: start: 20080101, end: 20100101
  2. PRIMIDONE [Concomitant]
     Indication: PRODUCT USED FOR UNKNOWN INDICATION
     Dates: start: 20100601, end: 20101019
  3. LAMOTRIGINE [Concomitant]
     Indication: PRODUCT USED FOR UNKNOWN INDICATION
     Dates: start: 20101019

REACTIONS (10)
  - ALOPECIA [None]
  - CONFUSIONAL STATE [None]
  - CONVULSION [None]
  - DRUG INEFFECTIVE [None]
  - FATIGUE [None]
  - PNEUMONIA [None]
  - PYREXIA [None]
  - SOMNOLENCE [None]
  - TREMOR [None]
  - WEIGHT INCREASED [None]
